FAERS Safety Report 9122588 (Version 2)
Quarter: 2013Q1

REPORT INFORMATION
  Report Type: Spontaneous
  Country: US (occurrence: None)
  Receive Date: 20130221
  Receipt Date: 20130304
  Transmission Date: 20140127
  Serious: Yes (Death)
  Sender: FDA-Public Use
  Company Number: 2013US-004588

PATIENT
  Age: 42 Year
  Sex: Female

DRUGS (2)
  1. OMONTYS (PEGINESATIDE) SOLUTION FOR INJECTION [Suspect]
     Indication: NEPHROGENIC ANAEMIA
     Route: 058
     Dates: start: 20120912, end: 20121109
  2. EPOGEN (EPOETIN ALFA) [Concomitant]

REACTIONS (2)
  - Eye operation complication [None]
  - Influenza like illness [None]
